FAERS Safety Report 12832634 (Version 2)
Quarter: 2017Q1

REPORT INFORMATION
  Report Type: Spontaneous
  Country: US (occurrence: US)
  Receive Date: 20161010
  Receipt Date: 20170127
  Transmission Date: 20170428
  Serious: Yes (Other)
  Sender: FDA-Public Use
  Company Number: US-BAYER-2016-193789

PATIENT
  Age: 49 Year
  Sex: Male

DRUGS (36)
  1. CIPRO [Suspect]
     Active Substance: CIPROFLOXACIN HYDROCHLORIDE
     Indication: SINUSITIS
     Dosage: 500 MG, UNK
     Dates: start: 20130502
  2. AVELOX [Suspect]
     Active Substance: MOXIFLOXACIN HYDROCHLORIDE
     Indication: MULTIPLE ALLERGIES
     Dosage: 400 MG, UNK
     Dates: start: 20110626
  3. AVELOX [Suspect]
     Active Substance: MOXIFLOXACIN HYDROCHLORIDE
     Indication: MULTIPLE ALLERGIES
     Dosage: 400 MG, UNK
     Dates: start: 20101112
  4. AVELOX [Suspect]
     Active Substance: MOXIFLOXACIN HYDROCHLORIDE
     Indication: MULTIPLE ALLERGIES
     Dosage: 400 MG, UNK
     Dates: start: 200912
  5. LEVAQUIN [Suspect]
     Active Substance: LEVOFLOXACIN
     Indication: EAR INFECTION
     Dosage: 500 MG, UNK
     Dates: start: 20090702
  6. LEVAQUIN [Suspect]
     Active Substance: LEVOFLOXACIN
     Indication: EAR INFECTION
     Dosage: UNK
  7. AVELOX [Suspect]
     Active Substance: MOXIFLOXACIN HYDROCHLORIDE
     Indication: MULTIPLE ALLERGIES
     Dosage: 400 MG, UNK
     Dates: start: 20051119
  8. LEVAQUIN [Suspect]
     Active Substance: LEVOFLOXACIN
     Indication: EAR INFECTION
     Dosage: 750 MG, UNK
     Dates: start: 20110912
  9. AVELOX [Suspect]
     Active Substance: MOXIFLOXACIN HYDROCHLORIDE
     Indication: MULTIPLE ALLERGIES
     Dosage: 400 MG, UNK
     Dates: start: 20100523
  10. AVELOX [Suspect]
     Active Substance: MOXIFLOXACIN HYDROCHLORIDE
     Indication: MULTIPLE ALLERGIES
     Dosage: 400 MG, UNK
     Dates: start: 20090504
  11. AVELOX [Suspect]
     Active Substance: MOXIFLOXACIN HYDROCHLORIDE
     Indication: MULTIPLE ALLERGIES
     Dosage: 400 MG, UNK
     Dates: start: 20090108
  12. AVELOX [Suspect]
     Active Substance: MOXIFLOXACIN HYDROCHLORIDE
     Indication: MULTIPLE ALLERGIES
     Dosage: 400 MG, UNK
     Dates: start: 20081122
  13. OXYCODONE [Concomitant]
     Active Substance: OXYCODONE
  14. TAMSULOSIN [Concomitant]
     Active Substance: TAMSULOSIN
     Dosage: 0.4 MG, UNK
  15. AVELOX [Suspect]
     Active Substance: MOXIFLOXACIN HYDROCHLORIDE
     Indication: MULTIPLE ALLERGIES
     Dosage: 400 MG, UNK
     Dates: start: 20080511
  16. IBUPROFEN. [Concomitant]
     Active Substance: IBUPROFEN
     Dosage: 800 MG, UNK
  17. CIPRO [Suspect]
     Active Substance: CIPROFLOXACIN HYDROCHLORIDE
     Indication: SINUSITIS
     Dosage: 500 MG, UNK
     Dates: start: 20111003
  18. AVELOX [Suspect]
     Active Substance: MOXIFLOXACIN HYDROCHLORIDE
     Indication: MULTIPLE ALLERGIES
     Dosage: 400 MG, UNK
     Dates: start: 20030627
  19. LEVAQUIN [Suspect]
     Active Substance: LEVOFLOXACIN
     Indication: EAR INFECTION
     Dosage: 750 MG, UNK
     Dates: start: 20090108
  20. LEVOXYL [Concomitant]
     Active Substance: LEVOTHYROXINE SODIUM
  21. LIPITOR [Concomitant]
     Active Substance: ATORVASTATIN CALCIUM
  22. AVELOX [Suspect]
     Active Substance: MOXIFLOXACIN HYDROCHLORIDE
     Indication: MULTIPLE ALLERGIES
     Dosage: 400 MG, UNK
     Dates: start: 20090311
  23. AVELOX [Suspect]
     Active Substance: MOXIFLOXACIN HYDROCHLORIDE
     Indication: MULTIPLE ALLERGIES
     Dosage: 400 MG, UNK
     Dates: start: 20051119
  24. LEVAQUIN [Suspect]
     Active Substance: LEVOFLOXACIN
     Indication: INFECTION
     Dosage: 500 MG, UNK
     Dates: start: 20100514
  25. LEVAQUIN [Suspect]
     Active Substance: LEVOFLOXACIN
     Indication: UPPER RESPIRATORY TRACT INFECTION
     Dosage: 500 MG, UNK
     Dates: start: 20100102
  26. LEVAQUIN [Suspect]
     Active Substance: LEVOFLOXACIN
     Indication: EAR INFECTION
     Dosage: 750 MG, UNK
     Dates: start: 20090516
  27. LEVOTHYROXINE. [Concomitant]
     Active Substance: LEVOTHYROXINE
     Dosage: 125 MG, UNK
  28. AVELOX [Suspect]
     Active Substance: MOXIFLOXACIN HYDROCHLORIDE
     Indication: MULTIPLE ALLERGIES
     Dosage: 400 MG, UNK
     Dates: start: 20030515
  29. LEVAQUIN [Suspect]
     Active Substance: LEVOFLOXACIN
     Indication: EAR INFECTION
     Dosage: 500 MG, UNK
     Dates: start: 20100716
  30. LEVAQUIN [Suspect]
     Active Substance: LEVOFLOXACIN
     Indication: EAR INFECTION
     Dosage: 700 MG, UNK
     Dates: start: 20081030
  31. CIPRO [Suspect]
     Active Substance: CIPROFLOXACIN HYDROCHLORIDE
     Indication: SINUSITIS
     Dosage: 500 MG, UNK
     Dates: start: 20121004
  32. AVELOX [Suspect]
     Active Substance: MOXIFLOXACIN HYDROCHLORIDE
     Indication: MULTIPLE ALLERGIES
     Dosage: 400 MG, UNK
     Dates: start: 20100927
  33. AVELOX [Suspect]
     Active Substance: MOXIFLOXACIN HYDROCHLORIDE
     Indication: MULTIPLE ALLERGIES
     Dosage: 400 MG, UNK
     Dates: start: 20070623
  34. AVELOX [Suspect]
     Active Substance: MOXIFLOXACIN HYDROCHLORIDE
     Indication: MULTIPLE ALLERGIES
     Dosage: 400 MG, UNK
     Dates: start: 20040108
  35. ATENOLOL. [Concomitant]
     Active Substance: ATENOLOL
     Indication: HEART RATE INCREASED
     Dosage: UNK
     Dates: start: 2011
  36. ATORVASTATIN [Concomitant]
     Active Substance: ATORVASTATIN
     Indication: BLOOD CHOLESTEROL INCREASED
     Dosage: UNK
     Dates: start: 2015

REACTIONS (4)
  - Neuropathy peripheral [Not Recovered/Not Resolved]
  - Carpal tunnel syndrome [None]
  - Pain [Not Recovered/Not Resolved]
  - Physical disability [None]

NARRATIVE: CASE EVENT DATE: 20100707
